FAERS Safety Report 4409303-8 (Version None)
Quarter: 2004Q3

REPORT INFORMATION
  Report Type: 
  Country: None (occurrence: None)
  Receive Date: 20040723
  Receipt Date: 20040629
  Transmission Date: 20050211
  Serious: Yes (Hospitalization)
  Sender: FDA-Public Use
  Company Number: 2004AP000559

PATIENT
  Age: 49 Year
  Sex: Male

DRUGS (1)
  1. RANITIDINE HCL [Suspect]
     Indication: ABDOMINAL PAIN UPPER
     Dosage: ORAL
     Route: 048

REACTIONS (7)
  - ACHLORHYDRIA [None]
  - CLOSTRIDIAL INFECTION [None]
  - DRUG SCREEN POSITIVE [None]
  - GASTROENTERITIS BACTERIAL [None]
  - GIARDIASIS [None]
  - PARASITIC INFECTION INTESTINAL [None]
  - WEIGHT DECREASED [None]
